FAERS Safety Report 8286820-4 (Version None)
Quarter: 2012Q2

REPORT INFORMATION
  Report Type: 
  Country: None (occurrence: None)
  Receive Date: 20120416
  Receipt Date: 20120405
  Transmission Date: 20120825
  Serious: Yes (Hospitalization)
  Sender: FDA-Public Use
  Company Number: FR-BRISTOL-MYERS SQUIBB COMPANY-16517419

PATIENT
  Age: 66 Year
  Sex: Female

DRUGS (7)
  1. CETUXIMAB [Suspect]
     Indication: HEAD AND NECK CANCER
     Dosage: 7FEB2012-7FEB2012(400MG) UNK-28FEB2012:385MG RECENT DOSE ON 28FEB2012 ALSO TAKEN VIA IV
     Route: 041
     Dates: start: 20120207, end: 20120228
  2. CISPLATIN [Suspect]
     Indication: HEAD AND NECK CANCER
     Dosage: LAST DOSE ON 20DEC2011
     Route: 041
     Dates: start: 20111220, end: 20111220
  3. PROPRANOLOL [Concomitant]
     Route: 048
  4. LASIX [Concomitant]
     Route: 048
  5. FLUOROURACIL [Suspect]
     Indication: HEAD AND NECK CANCER
     Dosage: LAST DOSE ON 25DEC11  5-FLUOROURACIL INFUSION
     Route: 042
     Dates: start: 20111220, end: 20111225
  6. ALDACTONE [Concomitant]
     Indication: HYPERTENSION
  7. DOCETAXEL [Suspect]
     Indication: HEAD AND NECK CANCER
     Dosage: DOCETAXEL IV INFUSION LAST DOSE ON 20DEC11
     Route: 041
     Dates: start: 20111220, end: 20111220

REACTIONS (2)
  - MELAENA [None]
  - ANAEMIA [None]
